FAERS Safety Report 6112257-X (Version None)
Quarter: 2009Q1

REPORT INFORMATION
  Report Type: 
  Country: None (occurrence: None)
  Receive Date: 20090310
  Receipt Date: 20090304
  Transmission Date: 20090719
  Serious: Yes (Death)
  Sender: FDA-Public Use
  Company Number: 2009SP004751

PATIENT

DRUGS (2)
  1. TEMODAL [Suspect]
     Indication: ANAPLASTIC ASTROCYTOMA
     Dates: start: 20080616
  2. TEMODAL [Suspect]
     Indication: GLIOBLASTOMA
     Dates: start: 20080616

REACTIONS (1)
  - DEATH [None]
